FAERS Safety Report 4429363-8 (Version None)
Quarter: 2004Q3

REPORT INFORMATION
  Report Type: 
  Country: None (occurrence: None)
  Receive Date: 20040819
  Receipt Date: 20040809
  Transmission Date: 20050211
  Serious: Yes (Other)
  Sender: FDA-Public Use
  Company Number: PHEH2004US08626

PATIENT
  Sex: Male

DRUGS (1)
  1. SERENTIL [Suspect]
     Route: 065

REACTIONS (3)
  - DELUSION [None]
  - HALLUCINATION [None]
  - INSOMNIA [None]
